FAERS Safety Report 9154457 (Version 1)
Quarter: 2013Q1

REPORT INFORMATION
  Report Type: Report from Study
  Country: US (occurrence: US)
  Receive Date: 20130311
  Receipt Date: 20130311
  Transmission Date: 20140127
  Serious: No
  Sender: FDA-Public Use
  Company Number: US-ABBOTT-12P-163-0921435-00

PATIENT
  Age: 19 None
  Sex: Female
  Weight: 49.49 kg

DRUGS (2)
  1. LUPRON DEPOT 11.25 MG [Suspect]
     Indication: ENDOMETRIOSIS
     Dates: start: 20120302
  2. NORETHINDRONE [Concomitant]
     Indication: DRUG THERAPY
     Dates: start: 20120302

REACTIONS (5)
  - Diarrhoea [Unknown]
  - Nausea [Recovering/Resolving]
  - Weight decreased [Unknown]
  - Decreased appetite [Unknown]
  - Hypophagia [Unknown]
